FAERS Safety Report 15124527 (Version 1)
Quarter: 2018Q3

REPORT INFORMATION
  Report Type: Report from Study
  Country: IT (occurrence: IT)
  Receive Date: 20180710
  Receipt Date: 20180710
  Transmission Date: 20181010
  Serious: Yes (Hospitalization)
  Sender: FDA-Public Use
  Company Number: IT-TEVA-2018-IT-921510

PATIENT
  Age: 7 Year
  Sex: Male

DRUGS (2)
  1. MICROPAM 5 MG/2.5 ML SOLUZIONE RETTALE [Suspect]
     Active Substance: DIAZEPAM
     Route: 054
     Dates: start: 20180224, end: 20180224
  2. TAVOR (LORAZEPAM) [Suspect]
     Active Substance: LORAZEPAM
     Route: 048
     Dates: start: 20180224, end: 20180224

REACTIONS (2)
  - Diplopia [Recovered/Resolved]
  - Agitation [Recovered/Resolved]

NARRATIVE: CASE EVENT DATE: 20180224
